FAERS Safety Report 7113493-6 (Version None)
Quarter: 2010Q4

REPORT INFORMATION
  Report Type: 
  Country: None (occurrence: None)
  Receive Date: 20101119
  Receipt Date: 20101110
  Transmission Date: 20110411
  Serious: No
  Sender: FDA-Public Use
  Company Number: US-PFIZER INC-2010147987

PATIENT
  Sex: Female
  Weight: 104 kg

DRUGS (3)
  1. PRISTIQ [Suspect]
     Indication: DEPRESSION
     Dates: start: 20100201
  2. PRISTIQ [Suspect]
     Indication: DIZZINESS
  3. ATIVAN [Concomitant]
     Indication: ANXIETY
     Dosage: UNK

REACTIONS (6)
  - ARTHRALGIA [None]
  - ARTHRITIS [None]
  - DEPRESSED MOOD [None]
  - DIZZINESS [None]
  - HEADACHE [None]
  - NAUSEA [None]
